FAERS Safety Report 8915034 (Version 3)
Quarter: 2013Q2

REPORT INFORMATION
  Report Type: Spontaneous
  Country: JP (occurrence: JP)
  Receive Date: 20121116
  Receipt Date: 20130508
  Transmission Date: 20140414
  Serious: Yes (Death)
  Sender: FDA-Public Use
  Company Number: JP-ALEXION PHARMACEUTICALS INC.-A201202153

PATIENT
  Age: 72 Year
  Sex: Female

DRUGS (6)
  1. SOLIRIS 300MG [Suspect]
     Indication: PAROXYSMAL NOCTURNAL HAEMOGLOBINURIA
     Dosage: 900 MG, Q2W
     Route: 042
     Dates: start: 20110405, end: 20121030
  2. PREDONINE [Concomitant]
     Dosage: 20 MG, QD
     Dates: start: 20110323, end: 20110323
  3. PREDONINE [Concomitant]
     Dosage: 10 MG, QD
     Dates: start: 20110329, end: 20110516
  4. PREDONINE [Concomitant]
     Dosage: 5 MG, QD
     Dates: start: 20110517
  5. NEORAL [Concomitant]
     Dosage: 100 MG, QD
     Dates: start: 20110318, end: 20111108
  6. NEORAL [Concomitant]
     Dosage: 75 MG QD, UNK
     Dates: start: 20111109

REACTIONS (1)
  - Death [Fatal]
